FAERS Safety Report 15448210 (Version 1)
Quarter: 2018Q3

REPORT INFORMATION
  Report Type: Spontaneous
  Country: US (occurrence: US)
  Receive Date: 20180926
  Receipt Date: 20180926
  Transmission Date: 20181010
  Serious: No
  Sender: FDA-Public Use
  Company Number: None

PATIENT
  Age: 25 Year
  Sex: Female
  Weight: 70.31 kg

DRUGS (1)
  1. ETONOGESTRAL IMPLANT 68MG RADIOPAQUE [Suspect]
     Active Substance: ETONOGESTREL
     Dates: start: 20180418, end: 20180715

REACTIONS (6)
  - Haemoglobin decreased [None]
  - Uterine disorder [None]
  - Uterine adhesions [None]
  - Asthenia [None]
  - Vaginal haemorrhage [None]
  - Uterine pain [None]

NARRATIVE: CASE EVENT DATE: 20180715
